FAERS Safety Report 5473122-4 (Version None)
Quarter: 2007Q4

REPORT INFORMATION
  Report Type: 
  Country: None (occurrence: None)
  Receive Date: 20071001
  Receipt Date: 20070926
  Transmission Date: 20080405
  Serious: Yes (Hospitalization)
  Sender: FDA-Public Use
  Company Number: A0677063A

PATIENT
  Age: 77 Year
  Sex: Male
  Weight: 83 kg

DRUGS (6)
  1. ECOTRIN [Suspect]
     Indication: PROPHYLAXIS
     Dosage: 81MG PER DAY
     Route: 048
     Dates: end: 20070604
  2. SUTENT [Suspect]
     Indication: METASTATIC RENAL CELL CARCINOMA
     Dosage: 37.5MG PER DAY
     Route: 065
     Dates: start: 20070518
  3. NORVASC [Suspect]
     Indication: HYPERTENSION
     Route: 048
  4. DIOVAN [Concomitant]
     Dosage: 160MG PER DAY
     Route: 048
  5. ZOLOFT [Concomitant]
     Dosage: 50MG PER DAY
     Route: 048
  6. VITAMIN CAP [Concomitant]
     Dosage: 1U PER DAY
     Route: 048

REACTIONS (21)
  - BLOOD PRESSURE INCREASED [None]
  - CHILLS [None]
  - DEHYDRATION [None]
  - DIZZINESS [None]
  - DYSPEPSIA [None]
  - EPISTAXIS [None]
  - FACE INJURY [None]
  - FALL [None]
  - GASTRODUODENITIS [None]
  - HAEMATEMESIS [None]
  - HAEMATOCRIT DECREASED [None]
  - HAEMOGLOBIN DECREASED [None]
  - HEAD INJURY [None]
  - HELICOBACTER INFECTION [None]
  - HYPOTENSION [None]
  - INFLUENZA LIKE ILLNESS [None]
  - PLATELET COUNT DECREASED [None]
  - PRESYNCOPE [None]
  - PYREXIA [None]
  - VIRAL INFECTION [None]
  - VOMITING [None]
